FAERS Safety Report 25083649 (Version 1)
Quarter: 2025Q1

REPORT INFORMATION
  Report Type: Spontaneous
  Country: US (occurrence: US)
  Receive Date: 20250317
  Receipt Date: 20250317
  Transmission Date: 20250409
  Serious: No
  Sender: CSL BEHRING
  Company Number: US-BEH-2025198276

PATIENT
  Age: 73 Year
  Sex: Female

DRUGS (1)
  1. PRIVIGEN [Suspect]
     Active Substance: HUMAN IMMUNOGLOBULIN G
     Indication: Dermatomyositis
     Route: 042
     Dates: start: 20170928

REACTIONS (1)
  - Blood pressure increased [Recovering/Resolving]

NARRATIVE: CASE EVENT DATE: 20250228
